FAERS Safety Report 6763278-5 (Version None)
Quarter: 2010Q2

REPORT INFORMATION
  Report Type: 
  Country: None (occurrence: None)
  Receive Date: 20100610
  Receipt Date: 20100527
  Transmission Date: 20101027
  Serious: Yes (Disabling)
  Sender: FDA-Public Use
  Company Number: GB-RANBAXY-2010RR-34296

PATIENT
  Sex: Male
  Weight: 94 kg

DRUGS (4)
  1. SIMVASTATIN [Suspect]
     Indication: HYPERCHOLESTEROLAEMIA
     Dosage: 40 MG, UNK
     Route: 048
     Dates: start: 20090227, end: 20091201
  2. EZETIMIBE/SIMVASTATIN [Suspect]
     Indication: HYPERCHOLESTEROLAEMIA
     Dosage: UNK
     Route: 048
     Dates: start: 20090424, end: 20091201
  3. SALBUTAMOL [Concomitant]
     Indication: ASTHMA
     Dosage: 2 DF, PRN
     Route: 055
     Dates: start: 20030101
  4. SERETIDE [Concomitant]
     Indication: ASTHMA
     Dosage: 2 DF, BID
     Route: 055
     Dates: start: 20030101

REACTIONS (1)
  - ASTHMA [None]
